FAERS Safety Report 9314187 (Version 1)
Quarter: 2013Q2

REPORT INFORMATION
  Report Type: Spontaneous
  Country: US (occurrence: None)
  Receive Date: 20130524
  Receipt Date: 20130524
  Transmission Date: 20140414
  Serious: Yes (Other)
  Sender: FDA-Public Use
  Company Number: None

PATIENT
  Age: 49 Year
  Sex: Female
  Weight: 63.5 kg

DRUGS (1)
  1. HYDROCODONE/APAP [Suspect]
     Dosage: 1-2 TABS
     Route: 048
     Dates: end: 20130505

REACTIONS (7)
  - Nausea [None]
  - Vomiting [None]
  - Dysarthria [None]
  - Somnolence [None]
  - Ocular icterus [None]
  - Listless [None]
  - Eye disorder [None]
